FAERS Safety Report 6634653-4 (Version None)
Quarter: 2010Q1

REPORT INFORMATION
  Report Type: 
  Country: None (occurrence: None)
  Receive Date: 20100315
  Receipt Date: 20100308
  Transmission Date: 20100710
  Serious: Yes (Other)
  Sender: FDA-Public Use
  Company Number: B0639041A

PATIENT

DRUGS (2)
  1. ZOVIRAX [Suspect]
     Indication: DRUG USE FOR UNKNOWN INDICATION
     Dosage: 500MG PER DAY
     Route: 042
  2. ZOVIRAX [Suspect]
     Dosage: 125MG PER DAY
     Route: 042

REACTIONS (1)
  - DEPRESSED LEVEL OF CONSCIOUSNESS [None]
